FAERS Safety Report 8264677-5 (Version None)
Quarter: 2012Q2

REPORT INFORMATION
  Report Type: 
  Country: None (occurrence: None)
  Receive Date: 20120403
  Receipt Date: 20120321
  Transmission Date: 20120825
  Serious: Yes (Hospitalization, Other)
  Sender: FDA-Public Use
  Company Number: NSR_00515_2012

PATIENT
  Age: 4 Year
  Sex: Male

DRUGS (1)
  1. ATENOLOL [Suspect]
     Indication: SUPRAVENTRICULAR TACHYCARDIA
     Dosage: 1 MG/KG BID, [1 MG/KG/DAY DIVIDED TWICE DAILY (4.25 ML PER DOSE) OF A 2 MG/ML SOLUTION])

REACTIONS (3)
  - ATRIOVENTRICULAR BLOCK COMPLETE [None]
  - OVERDOSE [None]
  - PRODUCT COMPOUNDING QUALITY ISSUE [None]
